FAERS Safety Report 21252174 (Version 2)
Quarter: 2022Q3

REPORT INFORMATION
  Report Type: Spontaneous
  Country: PT (occurrence: PT)
  Receive Date: 20220825
  Receipt Date: 20220913
  Transmission Date: 20221026
  Serious: Yes (Hospitalization)
  Sender: FDA-Public Use
  Company Number: None

PATIENT
  Age: 61 Year
  Sex: Male
  Weight: 72 kg

DRUGS (7)
  1. JEVTANA [Suspect]
     Active Substance: CABAZITAXEL
     Indication: Prostate cancer stage IV
     Dosage: 25 MG/M2 EVERY 3 WEEKS, INTRAVENOUS INFUSION OVER 60 MINUTES.
     Route: 042
     Dates: start: 20210818, end: 20220510
  2. PREDNISOLONE [Concomitant]
     Active Substance: PREDNISOLONE
     Dosage: UNK
  3. FENTANYL [Concomitant]
     Active Substance: FENTANYL
     Dosage: UNK
  4. MORPHINE [Concomitant]
     Active Substance: MORPHINE
     Dosage: UNK
  5. MEXAZOLAM [Concomitant]
     Active Substance: MEXAZOLAM
     Dosage: UNK
  6. SILODOSIN [Concomitant]
     Active Substance: SILODOSIN
     Dosage: UNK
  7. ATORVASTATIN [Concomitant]
     Active Substance: ATORVASTATIN
     Dosage: UNK

REACTIONS (2)
  - Cystitis interstitial [Recovered/Resolved]
  - Haematuria [Recovered/Resolved]
